FAERS Safety Report 23966091 (Version 2)
Quarter: 2024Q2

REPORT INFORMATION
  Report Type: Spontaneous
  Country: GR (occurrence: GR)
  Receive Date: 20240612
  Receipt Date: 20240619
  Transmission Date: 20240716
  Serious: Yes (Other)
  Sender: FDA-Public Use
  Company Number: GR-SUN PHARMACEUTICAL INDUSTRIES LTD-2024R1-450752

PATIENT
  Age: 41 Year
  Sex: Female

DRUGS (3)
  1. CISPLATIN [Suspect]
     Active Substance: CISPLATIN
     Indication: Adenoid cystic carcinoma
     Dosage: UNK
     Route: 065
     Dates: start: 2022
  2. DOXORUBICIN [Suspect]
     Active Substance: DOXORUBICIN
     Indication: Adenoid cystic carcinoma
     Dosage: UNK
     Route: 065
     Dates: start: 2022
  3. CYCLOPHOSPHAMIDE [Suspect]
     Active Substance: CYCLOPHOSPHAMIDE
     Indication: Adenoid cystic carcinoma
     Dosage: UNK
     Route: 065
     Dates: start: 2022

REACTIONS (1)
  - Condition aggravated [Unknown]

NARRATIVE: CASE EVENT DATE: 20220101
